FAERS Safety Report 4913126-0 (Version None)
Quarter: 2006Q1

REPORT INFORMATION
  Report Type: 
  Country: None (occurrence: None)
  Receive Date: 20060210
  Receipt Date: 20060127
  Transmission Date: 20060701
  Serious: Yes (Hospitalization)
  Sender: FDA-Public Use
  Company Number: PHBS2006TW01638

PATIENT
  Age: 21 Year
  Sex: Male

DRUGS (3)
  1. DICLOFENAC SODIUM [Suspect]
     Indication: PHARYNGOLARYNGEAL PAIN
  2. IBUPROFEN [Suspect]
     Indication: PHARYNGOLARYNGEAL PAIN
  3. PENICILLIN [Suspect]

REACTIONS (15)
  - ABDOMINAL PAIN UPPER [None]
  - DERMATITIS EXFOLIATIVE [None]
  - DIABETES MELLITUS INSULIN-DEPENDENT [None]
  - DIABETIC KETOACIDOSIS [None]
  - HEPATITIS [None]
  - HYPERSENSITIVITY [None]
  - LEUKOCYTOSIS [None]
  - LICHENOID KERATOSIS [None]
  - LIP EROSION [None]
  - LYMPHOCYTE MORPHOLOGY ABNORMAL [None]
  - METABOLIC ACIDOSIS [None]
  - NORMOCHROMIC NORMOCYTIC ANAEMIA [None]
  - THROMBOCYTOPENIA [None]
  - TONSILLITIS [None]
  - VOMITING [None]
